FAERS Safety Report 6783113-9 (Version None)
Quarter: 2010Q2

REPORT INFORMATION
  Report Type: 
  Country: None (occurrence: None)
  Receive Date: 20100619
  Receipt Date: 20100604
  Transmission Date: 20101027
  Serious: Yes (Hospitalization)
  Sender: FDA-Public Use
  Company Number: A-NJ2007-16216

PATIENT
  Age: 45 Year
  Sex: Female

DRUGS (3)
  1. TRACLEER [Suspect]
     Indication: PULMONARY ARTERIAL HYPERTENSION
     Dosage: ORAL
     Route: 048
     Dates: start: 20070501
  2. COUMADIN [Concomitant]
  3. LASIX [Concomitant]

REACTIONS (11)
  - COUGH [None]
  - HEADACHE [None]
  - HEART RATE IRREGULAR [None]
  - INFLUENZA [None]
  - MENORRHAGIA [None]
  - NASAL CONGESTION [None]
  - NASAL DISCOMFORT [None]
  - OROPHARYNGEAL PAIN [None]
  - SINUSITIS [None]
  - THROAT IRRITATION [None]
  - VIRAL INFECTION [None]
